FAERS Safety Report 18704266 (Version 2)
Quarter: 2021Q1

REPORT INFORMATION
  Report Type: Spontaneous
  Country: US (occurrence: US)
  Receive Date: 20210106
  Receipt Date: 20210205
  Transmission Date: 20210419
  Serious: Yes (Hospitalization)
  Sender: FDA-Public Use
  Company Number: US-TEVA-2020-US-1865206

PATIENT
  Age: 52 Year
  Sex: Female

DRUGS (1)
  1. CEFADROXIL. [Suspect]
     Active Substance: CEFADROXIL
     Indication: POSTOPERATIVE WOUND INFECTION
     Route: 065

REACTIONS (8)
  - Mental status changes [Recovered/Resolved]
  - Eosinophil count increased [Recovered/Resolved]
  - Mouth ulceration [Recovered/Resolved]
  - Drug reaction with eosinophilia and systemic symptoms [Recovered/Resolved]
  - Rash maculo-papular [Recovered/Resolved]
  - Blood bilirubin increased [Recovered/Resolved]
  - Acute hepatic failure [Recovered/Resolved]
  - Erythema multiforme [Recovered/Resolved]
